FAERS Safety Report 6542532-6 (Version None)
Quarter: 2010Q1

REPORT INFORMATION
  Report Type: 
  Country: None (occurrence: None)
  Receive Date: 20100119
  Receipt Date: 20100111
  Transmission Date: 20100710
  Serious: Yes (Other)
  Sender: FDA-Public Use
  Company Number: US-PFIZER INC-2008049820

PATIENT
  Sex: Male
  Weight: 68.027 kg

DRUGS (7)
  1. CHANTIX [Suspect]
     Indication: SMOKING CESSATION THERAPY
     Dosage: UNK
     Dates: start: 20080603
  2. CHANTIX [Suspect]
     Dosage: 0.5 MG, 1X/DAY
     Dates: start: 20080101
  3. CHANTIX [Suspect]
     Dosage: 0.5 MG, 1X/DAY
     Dates: start: 20091104
  4. CHANTIX [Suspect]
     Dosage: 1 MG, 2X/DAY
     Route: 048
  5. HYDROCHLOROTHIAZIDE [Suspect]
     Indication: HYPERTENSION
     Dosage: UNK
     Dates: end: 20090101
  6. LISINOPRIL [Concomitant]
     Indication: HYPERTENSION
     Route: 048
  7. HERBAL PREPARATION [Concomitant]

REACTIONS (16)
  - ABNORMAL DREAMS [None]
  - DEPRESSION [None]
  - DRUG DEPENDENCE [None]
  - DRUG INEFFECTIVE [None]
  - EMPHYSEMA [None]
  - HALLUCINATION [None]
  - IRRITABILITY [None]
  - MEMORY IMPAIRMENT [None]
  - MENTAL IMPAIRMENT [None]
  - MIDDLE INSOMNIA [None]
  - MUSCULOSKELETAL DISORDER [None]
  - NAUSEA [None]
  - NOCTURIA [None]
  - PAIN IN EXTREMITY [None]
  - SUICIDAL IDEATION [None]
  - URINARY RETENTION [None]
